FAERS Safety Report 7220500-9 (Version None)
Quarter: 2010Q4

REPORT INFORMATION
  Report Type: 
  Country: None (occurrence: None)
  Receive Date: 20101229
  Receipt Date: 20101217
  Transmission Date: 20110411
  Serious: Yes (Life-Threatening, Hospitalization, Other)
  Sender: FDA-Public Use
  Company Number: WAES 1009FRA00073

PATIENT
  Age: 55 Year
  Sex: Female

DRUGS (21)
  1. ISENTRESS [Suspect]
     Indication: HIV INFECTION
     Dosage: 800 MG/BID PO
     Route: 048
     Dates: start: 20100803, end: 20100920
  2. LAMIVUDINE [Suspect]
     Indication: HIV INFECTION
     Dosage: 300 MG/DAILY PO
     Route: 048
     Dates: start: 20100803, end: 20100920
  3. TENOFOVIR [Suspect]
     Indication: HIV INFECTION
     Dosage: 245 MG/DAILY PO
     Route: 048
     Dates: start: 20100803, end: 20100920
  4. RIFAMPIN [Suspect]
     Indication: TUBERCULOSIS
     Dosage: 600 MG/DAILY PO
     Route: 048
     Dates: start: 20100628, end: 20100920
  5. ISONIAZID [Suspect]
     Indication: TUBERCULOSIS
     Dosage: 250 MG/DAILY PO
     Route: 048
     Dates: start: 20100628, end: 20100920
  6. AMOXICILLIN/CLAVULANATE POTSSIUM [Suspect]
     Indication: PYREXIA
     Dosage: 2 TAB/DAILY PO
     Route: 048
     Dates: start: 20100907, end: 20100911
  7. CEFIXIME [Suspect]
     Indication: PYREXIA
     Dosage: 400 MG/DAILY PO
     Route: 048
     Dates: start: 20100911, end: 20100915
  8. AMLODIPINE [Concomitant]
  9. ASPIRIN [Concomitant]
  10. ATORVASTATIN CALCIUM [Concomitant]
  11. CHONDROITIN SULFATE SODIUM [Concomitant]
  12. ENOXAPARIN SODIUM [Concomitant]
  13. ESOMEPRAZOLE [Concomitant]
  14. ETHAMBUTOL HYDROCHLORIDE [Concomitant]
  15. LANSOPRAZOLE [Concomitant]
  16. MOXIFLOXACIN HYDROCHLORIDE [Concomitant]
  17. MYCOPHENOLATE MOFETIL [Concomitant]
  18. PREDNISONE [Concomitant]
  19. TACROLIMUS [Concomitant]
  20. TRAMADOL HCL [Concomitant]
  21. VALACYCLOVIR HYDROCHLORIDE [Concomitant]

REACTIONS (17)
  - BLOOD SODIUM DECREASED [None]
  - CYTOLYTIC HEPATITIS [None]
  - DISEASE RECURRENCE [None]
  - DRUG RASH WITH EOSINOPHILIA AND SYSTEMIC SYMPTOMS [None]
  - ENTEROCOCCUS TEST POSITIVE [None]
  - HAEMATOMA [None]
  - HAEMOGLOBIN DECREASED [None]
  - HEPATIC ARTERY THROMBOSIS [None]
  - HEPATIC ENCEPHALOPATHY [None]
  - HEPATIC NECROSIS [None]
  - HEPATITIS B [None]
  - HEPATITIS FULMINANT [None]
  - LIVER TRANSPLANT [None]
  - PERITONEAL HAEMORRHAGE [None]
  - PERITONITIS BACTERIAL [None]
  - PLATELET COUNT DECREASED [None]
  - STAPHYLOCOCCAL INFECTION [None]
